FAERS Safety Report 5323897-X (Version None)
Quarter: 2007Q2

REPORT INFORMATION
  Report Type: 
  Country: None (occurrence: None)
  Receive Date: 20070509
  Receipt Date: 20070509
  Transmission Date: 20071010
  Serious: Yes (Hospitalization)
  Sender: FDA-Public Use
  Company Number: None

PATIENT
  Age: 85 Year
  Sex: Female
  Weight: 56.6996 kg

DRUGS (1)
  1. ZOLOFT [Suspect]
     Indication: DEPRESSION
     Dosage: 50MG DAILY PO
     Route: 048
     Dates: start: 20041115, end: 20050201

REACTIONS (9)
  - ABNORMAL BEHAVIOUR [None]
  - DELUSION [None]
  - DEMENTIA ALZHEIMER'S TYPE [None]
  - DISORIENTATION [None]
  - FLIGHT OF IDEAS [None]
  - INCOHERENT [None]
  - LIBIDO DISORDER [None]
  - MANIA [None]
  - OBSESSIVE THOUGHTS [None]
